FAERS Safety Report 25336096 (Version 1)
Quarter: 2025Q2

REPORT INFORMATION
  Report Type: Spontaneous
  Country: US (occurrence: US)
  Receive Date: 20250520
  Receipt Date: 20250520
  Transmission Date: 20250716
  Serious: Yes (Life-Threatening, Other)
  Sender: CIPLA
  Company Number: US-CIPLA (EU) LIMITED-2025US05990

PATIENT

DRUGS (3)
  1. IRINOTECAN [Suspect]
     Active Substance: IRINOTECAN
     Indication: Gastrointestinal carcinoma
     Route: 065
  2. ELIMUSERTIB [Suspect]
     Active Substance: ELIMUSERTIB
     Indication: Gastrointestinal carcinoma
     Dosage: 20 MILLIGRAM, QD (D2, 3, 16, 17)
     Route: 048
  3. FLUOROURACIL [Suspect]
     Active Substance: FLUOROURACIL
     Indication: Gastrointestinal carcinoma
     Route: 065

REACTIONS (5)
  - Neutrophil count abnormal [Unknown]
  - Stomatitis [Unknown]
  - White blood cell disorder [Unknown]
  - Lymphocyte count abnormal [Unknown]
  - Toxicity to various agents [Unknown]
